FAERS Safety Report 24049071 (Version 3)
Quarter: 2024Q4

REPORT INFORMATION
  Report Type: Report from Study
  Country: KR (occurrence: KR)
  Receive Date: 20240704
  Receipt Date: 20241008
  Transmission Date: 20250115
  Serious: Yes (Hospitalization, Other)
  Sender: TAKEDA
  Company Number: KR-TAKEDA-2024TUS066927

PATIENT
  Age: 41 Year
  Sex: Male
  Weight: 92 kg

DRUGS (18)
  1. VEDOLIZUMAB [Suspect]
     Active Substance: VEDOLIZUMAB
     Indication: Crohn^s disease
     Dosage: 300 MILLIGRAM
     Route: 042
     Dates: start: 20240503
  2. FOLIC ACID [Concomitant]
     Active Substance: FOLIC ACID
     Dosage: 1 MILLIGRAM, QD
     Route: 048
     Dates: start: 20230320, end: 20240809
  3. PACETA [Concomitant]
     Indication: Adverse event
     Dosage: UNK
     Route: 042
     Dates: start: 20240627, end: 20240701
  4. Inno.n 0.9% sodium chloride [Concomitant]
     Indication: Adverse event
     Dosage: 100 MILLILITER, QD
     Route: 042
     Dates: start: 20240627, end: 20240701
  5. Inno.n 0.9% sodium chloride [Concomitant]
     Dosage: 1000 MILLILITER, QD
     Route: 042
     Dates: start: 20240628, end: 20240628
  6. Citopcin [Concomitant]
     Indication: Adverse event
     Dosage: 400 MILLIGRAM, BID
     Route: 042
     Dates: start: 20240627, end: 20240627
  7. PERI SOLUTION [Concomitant]
     Indication: Adverse event
     Dosage: 1000 MILLILITER, QD
     Route: 042
     Dates: start: 20240627, end: 20240701
  8. PANTOPRAZOLE SODIUM [Concomitant]
     Active Substance: PANTOPRAZOLE SODIUM
     Indication: Adverse event
     Dosage: 40 MILLIGRAM, QD
     Route: 042
     Dates: start: 20240627, end: 20240627
  9. ACETYLCYSTEINE [Concomitant]
     Active Substance: ACETYLCYSTEINE
     Indication: Adverse event
     Dosage: 10 MILLILITER, TID
     Route: 042
     Dates: start: 20240627, end: 20240627
  10. SALON [Concomitant]
     Indication: Adverse event
     Dosage: 30 MILLILITER, BID
     Route: 042
     Dates: start: 20240628, end: 20240701
  11. HUMAN PLASMA [Concomitant]
     Active Substance: HUMAN PLASMA
     Indication: Adverse event
     Dosage: 1000 MILLILITER, QD
     Route: 042
     Dates: start: 20240627, end: 20240627
  12. HUMAN PLASMA [Concomitant]
     Active Substance: HUMAN PLASMA
     Dosage: 1000 MILLILITER, BID
     Route: 042
     Dates: start: 20240628, end: 20240628
  13. LANSOPRAZOLE [Concomitant]
     Active Substance: LANSOPRAZOLE
     Indication: Adverse event
     Dosage: 15 MILLIGRAM, QD
     Route: 048
     Dates: start: 20240628, end: 20240712
  14. PENTASA [Concomitant]
     Active Substance: MESALAMINE
     Dosage: 2000 MILLIGRAM, BID
     Route: 048
     Dates: start: 20230320, end: 20240809
  15. AZATHIOPRINE [Concomitant]
     Active Substance: AZATHIOPRINE
     Dosage: 150 MILLIGRAM, QD
     Route: 048
     Dates: start: 20230512, end: 20240809
  16. PREDNISOLONE [Concomitant]
     Active Substance: PREDNISOLONE
     Dosage: 20 MILLIGRAM, BID
     Route: 048
     Dates: start: 20240322, end: 20240516
  17. VITAMINS [Concomitant]
     Active Substance: VITAMINS
     Indication: Adverse event
     Dosage: 5 MILLILITER, QD
     Route: 042
     Dates: start: 20240702, end: 20240702
  18. METHYLPREDNISOLONE [Concomitant]
     Active Substance: METHYLPREDNISOLONE
     Indication: Adverse event
     Dosage: 16 MILLIGRAM, BID
     Route: 048
     Dates: start: 20240702, end: 20240712

REACTIONS (1)
  - Ileus paralytic [Recovered/Resolved]

NARRATIVE: CASE EVENT DATE: 20240627
